FAERS Safety Report 24811297 (Version 1)
Quarter: 2025Q1

REPORT INFORMATION
  Report Type: Spontaneous
  Country: US (occurrence: US)
  Receive Date: 20250106
  Receipt Date: 20250106
  Transmission Date: 20250409
  Serious: Yes (Other)
  Sender: AMGEN
  Company Number: US-AMGEN-USASP2024257054

PATIENT
  Age: 74 Year
  Sex: Female

DRUGS (1)
  1. PREDNISONE [Suspect]
     Active Substance: PREDNISONE
     Indication: Autoimmune haemolytic anaemia
     Dosage: 1 MILLIGRAM, QD
     Route: 065

REACTIONS (2)
  - Paraganglion neoplasm [Unknown]
  - Hepatic enzyme increased [Unknown]
